FAERS Safety Report 6885877-2 (Version None)
Quarter: 2010Q3

REPORT INFORMATION
  Report Type: 
  Country: None (occurrence: None)
  Receive Date: 20100729
  Receipt Date: 20080527
  Transmission Date: 20110219
  Serious: No
  Sender: FDA-Public Use
  Company Number: US-PFIZER INC-2008046114

PATIENT
  Sex: Female
  Weight: 72.727 kg

DRUGS (8)
  1. CELEBREX [Suspect]
     Indication: ARTHRITIS
     Route: 048
     Dates: start: 20080101, end: 20080501
  2. CORTISONE [Suspect]
     Indication: ARTHRITIS
  3. LOTREL [Concomitant]
  4. NEXIUM [Concomitant]
  5. SOFTENERS, EMOLLIENTS [Concomitant]
  6. DEMEROL [Concomitant]
  7. PROMETHAZINE [Concomitant]
  8. ZANAFLEX [Concomitant]

REACTIONS (2)
  - HAEMORRHAGE SUBCUTANEOUS [None]
  - PAIN [None]
